FAERS Safety Report 6703030-X (Version None)
Quarter: 2010Q2

REPORT INFORMATION
  Report Type: 
  Country: None (occurrence: None)
  Receive Date: 20100429
  Receipt Date: 20100429
  Transmission Date: 20101027
  Serious: Yes (Hospitalization)
  Sender: FDA-Public Use
  Company Number: None

PATIENT
  Age: 61 Year
  Sex: Male
  Weight: 85.5 kg

DRUGS (2)
  1. BACLOFEN [Suspect]
     Indication: MUSCLE RELAXANT THERAPY
     Dosage: 20 MG TID PO
     Route: 048
     Dates: start: 20080929, end: 20100422
  2. DILTIAZEM HCL [Suspect]
     Indication: HYPERTENSION
     Dosage: 360 MG EVERY DAY PO
     Route: 048
     Dates: start: 20020311

REACTIONS (1)
  - SYNCOPE [None]
